FAERS Safety Report 6873630-5 (Version None)
Quarter: 2010Q3

REPORT INFORMATION
  Report Type: 
  Country: None (occurrence: None)
  Receive Date: 20100723
  Receipt Date: 20090401
  Transmission Date: 20110219
  Serious: No
  Sender: FDA-Public Use
  Company Number: US-PFIZER INC-2009162442

PATIENT
  Sex: Female
  Weight: 72.562 kg

DRUGS (6)
  1. CHANTIX [Suspect]
     Indication: SMOKING CESSATION THERAPY
     Dosage: 1 MG, 2X/DAY
     Dates: start: 20080101
  2. WELLBUTRIN [Concomitant]
     Indication: DEPRESSION
     Dosage: UNK
  3. IBANDRONATE SODIUM [Concomitant]
     Dosage: UNK
  4. CALCIUM [Concomitant]
     Dosage: UNK
  5. VITAMIN E [Concomitant]
     Dosage: UNK
  6. FISH OIL [Concomitant]
     Dosage: UNK

REACTIONS (5)
  - ABNORMAL DREAMS [None]
  - COLD SWEAT [None]
  - INITIAL INSOMNIA [None]
  - MIDDLE INSOMNIA [None]
  - NERVOUSNESS [None]
